FAERS Safety Report 8480114 (Version 6)
Quarter: 2012Q4

REPORT INFORMATION
  Report Type: Report from Study
  Country: JP (occurrence: JP)
  Receive Date: 20120328
  Receipt Date: 20121119
  Transmission Date: 20130627
  Serious: Yes (Hospitalization)
  Sender: FDA-Public Use
  Company Number: JP-VERTEX PHARMACEUTICAL INC.-AE-2012-004265

PATIENT
  Age: 50 Year
  Sex: Male

DRUGS (10)
  1. VX-950 (TELAPREVIR) [Suspect]
     Indication: CHRONIC HEPATITIS C
     Dosage: 2250 mg, qd
     Dates: start: 20120203, end: 20120306
  2. VX-950 (TELAPREVIR) [Suspect]
     Dosage: 1500 mg, qd
     Dates: start: 20120307, end: 20120426
  3. VX-950 (TELAPREVIR) [Suspect]
     Dosage: UNK
     Route: 048
  4. PEGINTERFERON ALFA-2B [Suspect]
     Indication: CHRONIC HEPATITIS C
     Dosage: 1.5 ?g/kg, qw
     Route: 058
     Dates: start: 20120203, end: 20120712
  5. RIBAVIRIN [Suspect]
     Indication: CHRONIC HEPATITIS C
     Dosage: 800 mg, qd
     Route: 048
     Dates: start: 20120203, end: 20120307
  6. RIBAVIRIN [Suspect]
     Dosage: 600 mg, qd
     Route: 048
     Dates: start: 20120308, end: 20120313
  7. RIBAVIRIN [Suspect]
     Dosage: 400 mg, qd
     Route: 048
     Dates: start: 20120314, end: 20120501
  8. RIBAVIRIN [Suspect]
     Dosage: 600 UNK, UNK
     Route: 048
     Dates: start: 20120502, end: 20120523
  9. RIBAVIRIN [Suspect]
     Dosage: 800 mg, qd
     Route: 048
     Dates: start: 20120524, end: 20120606
  10. RIBAVIRIN [Suspect]
     Dosage: 600 UNK, UNK
     Route: 048
     Dates: start: 20120607, end: 20120719

REACTIONS (2)
  - Abdominal discomfort [Recovered/Resolved]
  - Malaise [Recovered/Resolved]
